FAERS Safety Report 25073185 (Version 1)
Quarter: 2025Q1

REPORT INFORMATION
  Report Type: Spontaneous
  Country: AU (occurrence: AU)
  Receive Date: 20250313
  Receipt Date: 20250313
  Transmission Date: 20250409
  Serious: Yes (Other)
  Sender: ALKEM
  Company Number: AU-ALKEM LABORATORIES LIMITED-AU-ALKEM-2025-02526

PATIENT
  Age: 61 Year
  Sex: Female

DRUGS (3)
  1. MYCOPHENOLATE MOFETIL [Suspect]
     Active Substance: MYCOPHENOLATE MOFETIL
     Indication: Product used for unknown indication
     Route: 065
  2. CYCLOSPORINE [Suspect]
     Active Substance: CYCLOSPORINE
     Indication: Product used for unknown indication
     Route: 065
  3. METHOTREXATE [Suspect]
     Active Substance: METHOTREXATE
     Indication: Product used for unknown indication
     Route: 065

REACTIONS (9)
  - Oesophageal stenosis [Unknown]
  - Dysphagia [Unknown]
  - Inflammation [Unknown]
  - Steroid dependence [Unknown]
  - Drug intolerance [Unknown]
  - Therapy partial responder [Unknown]
  - Product use in unapproved indication [Unknown]
  - Drug ineffective for unapproved indication [Unknown]
  - Disease recurrence [Unknown]
